FAERS Safety Report 8532194-0 (Version None)
Quarter: 2012Q3

REPORT INFORMATION
  Report Type: 
  Country: None (occurrence: None)
  Receive Date: 20120723
  Receipt Date: 20120713
  Transmission Date: 20120928
  Serious: Yes (Hospitalization)
  Sender: FDA-Public Use
  Company Number: DE-ALLERGAN-1208528US

PATIENT
  Age: 40 Year
  Sex: Female
  Weight: 60 kg

DRUGS (1)
  1. BOTULINUM TOXIN TYPE A [Suspect]
     Indication: PRODUCT USED FOR UNKNOWN INDICATION
     Dosage: UNK
     Route: 030
     Dates: start: 20120614, end: 20120614

REACTIONS (9)
  - ANXIETY [None]
  - PARAESTHESIA [None]
  - URINARY TRACT INFECTION [None]
  - DIARRHOEA [None]
  - TACHYCARDIA [None]
  - NAUSEA [None]
  - HYPERHIDROSIS [None]
  - DIZZINESS [None]
  - DRY MOUTH [None]
